FAERS Safety Report 6214004-X (Version None)
Quarter: 2009Q2

REPORT INFORMATION
  Report Type: 
  Country: None (occurrence: None)
  Receive Date: 20090604
  Receipt Date: 20090526
  Transmission Date: 20091009
  Serious: Yes (Life-Threatening, Hospitalization)
  Sender: FDA-Public Use
  Company Number: FR-SOLVAY-00209002852

PATIENT
  Age: 22840 Day
  Sex: Male

DRUGS (5)
  1. COVERSYL 4 MG TABLET [Suspect]
     Indication: HYPERTENSION
     Dosage: DAILY DOSE: 4 MILLIGRAM(S)
     Route: 048
     Dates: start: 19990101
  2. RAPTIVA [Suspect]
     Indication: PSORIASIS
     Dosage: DAILY DOSE:  UNKNOWN, FRQUENCY: 1MG/KG/WEEK.
     Route: 058
     Dates: start: 20070827, end: 20080929
  3. PLAVIX [Suspect]
     Indication: CEREBROVASCULAR ACCIDENT
     Dosage: DAILY DOSE: 75 MILLIGRAM(S)
     Route: 048
     Dates: start: 20050101, end: 20080929
  4. TAHOR [Suspect]
     Indication: CEREBROVASCULAR ACCIDENT
     Dosage: DAILY DOSE:  UNKNOWN
     Route: 048
     Dates: start: 20050101, end: 20080929
  5. LIORESAL [Suspect]
     Indication: CEREBROVASCULAR ACCIDENT
     Dosage: DAILY DOSE: 10 MILLIGRAM(S)
     Route: 048
     Dates: start: 20050101

REACTIONS (2)
  - METASTASIS [None]
  - RECTAL CANCER [None]
